FAERS Safety Report 24366656 (Version 1)
Quarter: 2024Q3

REPORT INFORMATION
  Report Type: Spontaneous
  Country: JP (occurrence: JP)
  Receive Date: 20240926
  Receipt Date: 20240926
  Transmission Date: 20241017
  Serious: Yes (Hospitalization)
  Sender: JOHNSON AND JOHNSON
  Company Number: JP-ACTELION-A-CH2018-170307

PATIENT
  Age: 32 Year
  Sex: Male

DRUGS (5)
  1. BOSENTAN [Suspect]
     Active Substance: BOSENTAN
     Indication: Right-to-left cardiac shunt
     Dosage: 62.5 MG, UNK
     Route: 048
  2. BOSENTAN [Suspect]
     Active Substance: BOSENTAN
     Dosage: 125 MG, UNK
     Route: 048
  3. BOSENTAN [Suspect]
     Active Substance: BOSENTAN
     Dosage: 62.5 MG, UNK
     Route: 048
  4. TADALAFIL [Concomitant]
     Active Substance: TADALAFIL
     Dosage: 40 MG, UNK
  5. TADALAFIL [Concomitant]
     Active Substance: TADALAFIL
     Dosage: 20 MG, UNK

REACTIONS (9)
  - Right-to-left cardiac shunt [Recovered/Resolved]
  - Condition aggravated [Recovered/Resolved]
  - Dyspnoea [Recovered/Resolved]
  - Bedridden [Recovered/Resolved]
  - Hepatic enzyme increased [Unknown]
  - Platelet count decreased [Recovered/Resolved]
  - Hypotension [Not Recovered/Not Resolved]
  - Brain natriuretic peptide increased [Unknown]
  - Off label use [Unknown]
